FAERS Safety Report 25956958 (Version 3)
Quarter: 2025Q4

REPORT INFORMATION
  Report Type: Spontaneous
  Country: IL (occurrence: IL)
  Receive Date: 20251024
  Receipt Date: 20251030
  Transmission Date: 20260118
  Serious: Yes (Hospitalization, Other)
  Sender: REGENERON
  Company Number: IL-BAYER-2025A138978

PATIENT
  Age: 76 Year
  Sex: Male

DRUGS (2)
  1. EYLEA [Suspect]
     Active Substance: AFLIBERCEPT
     Indication: Retinal vein occlusion
     Dosage: UNK UNK, ONCE, RIGHT EYE (BOTH EYES TREATED), SOLUTION FOR INJECTION IN PRE-FILLED SYRINGE, 40 MG/ML
     Route: 031
     Dates: start: 20251008, end: 20251008
  2. EYLEA [Suspect]
     Active Substance: AFLIBERCEPT
     Dosage: UNK UNK, ONCE, LEFT EYE, SOLUTION FOR INJECTION IN PRE-FILLED SYRINGE, 40 MG/ML
     Route: 031
     Dates: start: 20251008, end: 20251008

REACTIONS (5)
  - Blindness unilateral [Unknown]
  - Bacterial endophthalmitis [Unknown]
  - Eye pain [Unknown]
  - Ocular hyperaemia [Unknown]
  - Vision blurred [Unknown]

NARRATIVE: CASE EVENT DATE: 20251010
